FAERS Safety Report 7312577-7 (Version None)
Quarter: 2011Q1

REPORT INFORMATION
  Report Type: 
  Country: None (occurrence: None)
  Receive Date: 20110224
  Receipt Date: 20110221
  Transmission Date: 20110831
  Serious: Yes (Death, Hospitalization, Other)
  Sender: FDA-Public Use
  Company Number: PHHY2011JP06959

PATIENT
  Age: 70 Year
  Sex: Female

DRUGS (3)
  1. SANDIMMUNE [Suspect]
     Indication: HEPATITIS E
     Dosage: UNK
     Route: 042
     Dates: start: 20100401
  2. ADRENOCORTICOTROPHIC HORMONE [Suspect]
     Route: 042
  3. STEROIDS NOS [Concomitant]

REACTIONS (19)
  - HEPATITIS FULMINANT [None]
  - HEPATIC FIBROSIS [None]
  - ALANINE AMINOTRANSFERASE INCREASED [None]
  - HEPATIC FUNCTION ABNORMAL [None]
  - PANCREATITIS NECROTISING [None]
  - HEPATIC NECROSIS [None]
  - JAUNDICE [None]
  - PROTHROMBIN TIME PROLONGED [None]
  - BLOOD BILIRUBIN INCREASED [None]
  - HEPATIC ATROPHY [None]
  - HAEMORRHAGE [None]
  - ASPARTATE AMINOTRANSFERASE INCREASED [None]
  - CONDITION AGGRAVATED [None]
  - HEPATITIS E [None]
  - ADRENALITIS [None]
  - PNEUMONIA [None]
  - CHOLESTASIS [None]
  - EOSINOPHILIC PNEUMONIA [None]
  - CYTOMEGALOVIRUS INFECTION [None]
